FAERS Safety Report 9571760 (Version 1)
Quarter: 2013Q4

REPORT INFORMATION
  Report Type: Spontaneous
  Country: US (occurrence: US)
  Receive Date: 20131001
  Receipt Date: 20131001
  Transmission Date: 20140711
  Serious: No
  Sender: FDA-Public Use
  Company Number: US-BIOGENIDEC-2013BI065830

PATIENT
  Age: 54 Year
  Sex: Female

DRUGS (7)
  1. TECFIDERA [Suspect]
     Indication: MULTIPLE SCLEROSIS
     Route: 048
     Dates: start: 201306
  2. TECFIDERA [Suspect]
     Indication: MULTIPLE SCLEROSIS
     Route: 048
  3. LIPTOR [Concomitant]
  4. CELEBREX [Concomitant]
  5. TRAMADOL [Concomitant]
  6. FISH OIL [Concomitant]
  7. BACLOFEN [Concomitant]

REACTIONS (1)
  - Diarrhoea [Not Recovered/Not Resolved]
